FAERS Safety Report 7931639-4 (Version None)
Quarter: 2011Q4

REPORT INFORMATION
  Report Type: 
  Country: None (occurrence: None)
  Receive Date: 20111121
  Receipt Date: 20111111
  Transmission Date: 20120403
  Serious: Yes (Other)
  Sender: FDA-Public Use
  Company Number: PHEH2011US009435

PATIENT
  Age: 60 Year
  Sex: Male

DRUGS (1)
  1. GLEEVEC [Suspect]
     Indication: GASTROINTESTINAL CANCER METASTATIC
     Dosage: 400 MG, QD
     Route: 048
     Dates: start: 20060101

REACTIONS (4)
  - THYROID CANCER [None]
  - SKIN CANCER [None]
  - EYE SWELLING [None]
  - DIARRHOEA [None]
